FAERS Safety Report 10900351 (Version 1)
Quarter: 2015Q1

REPORT INFORMATION
  Report Type: Spontaneous
  Country: US (occurrence: US)
  Receive Date: 20150310
  Receipt Date: 20150310
  Transmission Date: 20150721
  Serious: No
  Sender: FDA-Public Use
  Company Number: US-BIOGENIDEC-2015BI022867

PATIENT
  Age: 60 Year
  Sex: Female

DRUGS (4)
  1. VITMAIN D [Concomitant]
     Dosage: DOSE UNIT:10000
  2. VITMAIN D [Concomitant]
     Dosage: DOSE UNIT:5000
  3. XANAX [Concomitant]
     Active Substance: ALPRAZOLAM
  4. TECFIDERA [Suspect]
     Active Substance: DIMETHYL FUMARATE
     Indication: MULTIPLE SCLEROSIS
     Dates: start: 2012, end: 2014

REACTIONS (11)
  - Gait spastic [Unknown]
  - Nuclear magnetic resonance imaging abnormal [Unknown]
  - Demyelination [Unknown]
  - Dizziness [Unknown]
  - Peroneal nerve palsy [Unknown]
  - Drug ineffective [Unknown]
  - Limb discomfort [Unknown]
  - Hot flush [Not Recovered/Not Resolved]
  - Gait disturbance [Unknown]
  - Vertigo [Unknown]
  - Fatigue [Unknown]

NARRATIVE: CASE EVENT DATE: 201408
